FAERS Safety Report 17651902 (Version 17)
Quarter: 2021Q2

REPORT INFORMATION
  Report Type: Report from Study
  Country: US (occurrence: US)
  Receive Date: 20200409
  Receipt Date: 20210614
  Transmission Date: 20210716
  Serious: Yes (Other)
  Sender: FDA-Public Use
  Company Number: US-PFIZER INC-2019205668

PATIENT
  Age: 63 Year
  Sex: Female

DRUGS (6)
  1. IBRANCE [Suspect]
     Active Substance: PALBOCICLIB
     Dosage: 125 MG, DAILY, FOR 21 DAYS AND OFF FOR 7 DAYS
     Route: 048
     Dates: start: 2019
  2. ANASTROZOLE. [Suspect]
     Active Substance: ANASTROZOLE
     Dosage: UNK
  3. IBRANCE [Suspect]
     Active Substance: PALBOCICLIB
     Dosage: 125 MG, CYCLIC  ( FOR 21 DAYS AND OFF FOR 7 DAYS)
     Route: 048
     Dates: start: 20201213
  4. IBRANCE [Suspect]
     Active Substance: PALBOCICLIB
     Indication: BREAST CANCER FEMALE
     Dosage: 125 MG, DAILY, FOR 21 DAYS OF 28 DAY CYCLE
     Route: 048
     Dates: start: 20190424, end: 2019
  5. IBRANCE [Suspect]
     Active Substance: PALBOCICLIB
     Dosage: 125 MG, DAILY, FOR 21 DAYS AND OFF FOR 7 DAYS
     Route: 048
     Dates: start: 20200301, end: 202007
  6. ZOMETA [Concomitant]
     Active Substance: ZOLEDRONIC ACID
     Dosage: UNK

REACTIONS (18)
  - Red blood cell count decreased [Recovering/Resolving]
  - Neck pain [Unknown]
  - Depression [Unknown]
  - Chest pain [Unknown]
  - Product dose omission in error [Unknown]
  - Blood count abnormal [Unknown]
  - Tachycardia [Unknown]
  - Arthralgia [Unknown]
  - Fatigue [Recovering/Resolving]
  - Pruritus [Not Recovered/Not Resolved]
  - Dry skin [Not Recovered/Not Resolved]
  - Abdominal pain [Recovering/Resolving]
  - Back pain [Unknown]
  - Alopecia [Recovered/Resolved]
  - Diarrhoea [Not Recovered/Not Resolved]
  - White blood cell count decreased [Recovering/Resolving]
  - Nausea [Unknown]
  - Cancer pain [Recovered/Resolved]

NARRATIVE: CASE EVENT DATE: 2019
